FAERS Safety Report 5083440-X (Version None)
Quarter: 2006Q3

REPORT INFORMATION
  Report Type: 
  Country: None (occurrence: None)
  Receive Date: 20060816
  Receipt Date: 20060801
  Transmission Date: 20061208
  Serious: Yes (Other)
  Sender: FDA-Public Use
  Company Number: US-2006-001457

PATIENT
  Age: 47 Year
  Sex: Female
  Weight: 68.9 kg

DRUGS (5)
  1. BETASERON [Suspect]
     Indication: MULTIPLE SCLEROSIS
     Dosage: 8 MIU, EVERY 2D, SUBCUTANEOUS
     Route: 058
     Dates: start: 20051107
  2. CLONIDINE [Concomitant]
  3. AGGRENOX [Concomitant]
  4. PROZAC [Concomitant]
  5. IPOREL (CLONIDINE HYDROCHLORIDE) [Concomitant]

REACTIONS (2)
  - DIARRHOEA [None]
  - WEIGHT DECREASED [None]
